FAERS Safety Report 15928534 (Version 1)
Quarter: 2019Q1

REPORT INFORMATION
  Report Type: Spontaneous
  Country: NL (occurrence: NL)
  Receive Date: 20190206
  Receipt Date: 20190206
  Transmission Date: 20190417
  Serious: Yes (Other)
  Sender: FDA-Public Use
  Company Number: NL-MYLANLABS-2019M1010347

PATIENT
  Age: 55 Year
  Sex: Male
  Weight: 95 kg

DRUGS (7)
  1. HYDROCHLOROTHIAZIDE/LOSARTAN [Suspect]
     Active Substance: HYDROCHLOROTHIAZIDE\LOSARTAN
     Indication: HYPERTENSION
     Dosage: 1 MAAL DAAGS
     Route: 050
     Dates: start: 2006
  2. ATORVASTATINE TEVA [Suspect]
     Active Substance: ATORVASTATIN
     Indication: PROPHYLAXIS
     Dosage: 2 MAAL 40 MG. PER DAG IN EEN GIFT
     Route: 048
     Dates: start: 200610
  3. ALPRAZOLAM. [Concomitant]
     Active Substance: ALPRAZOLAM
     Dosage: 6 MAAL DAAGS
     Route: 048
     Dates: start: 2003
  4. GAVISCON                           /01279001/ [Concomitant]
     Dosage: 2 MAAL DAAGS
     Route: 048
     Dates: start: 2008
  5. VENTOLIN [Concomitant]
     Active Substance: ALBUTEROL SULFATE
     Dosage: NAAR BEHOEFTE; SOMS 1 TOT 3 MAAL PER DAG.
     Route: 048
     Dates: start: 2010
  6. NEUSDRUPPELS VOOR DE VERSTOPTE NEUS XYLOMETA [Concomitant]
     Dosage: 2 MAAL DAAGS
     Route: 045
     Dates: start: 1988
  7. CARBASALATE CALCIUM [Suspect]
     Active Substance: CARBASPIRIN
     Indication: PROPHYLAXIS
     Dosage: 1 MAAL DAAGS 100 MG.
     Route: 050
     Dates: start: 2006

REACTIONS (16)
  - Depressed mood [Not Recovered/Not Resolved]
  - Abdominal pain [Not Recovered/Not Resolved]
  - Agitation [Not Recovered/Not Resolved]
  - Loss of libido [Not Recovered/Not Resolved]
  - Listless [Not Recovered/Not Resolved]
  - Constipation [Not Recovered/Not Resolved]
  - Neck pain [Not Recovered/Not Resolved]
  - Dyspnoea [Not Recovered/Not Resolved]
  - Pain [Not Recovered/Not Resolved]
  - Nervousness [Not Recovered/Not Resolved]
  - Pain in extremity [Not Recovered/Not Resolved]
  - Suicidal ideation [Not Recovered/Not Resolved]
  - Anxiety disorder [Not Recovered/Not Resolved]
  - Gastrooesophageal reflux disease [Not Recovered/Not Resolved]
  - Fatigue [Not Recovered/Not Resolved]
  - Musculoskeletal pain [Not Recovered/Not Resolved]

NARRATIVE: CASE EVENT DATE: 2010
